FAERS Safety Report 5817773-3 (Version None)
Quarter: 2008Q3

REPORT INFORMATION
  Report Type: 
  Country: None (occurrence: None)
  Receive Date: 20080722
  Receipt Date: 20080507
  Transmission Date: 20090109
  Serious: No
  Sender: FDA-Public Use
  Company Number: US-TYCO HEALTHCARE/MALLINCKRODT-T200800985

PATIENT

DRUGS (9)
  1. ULTRATAG [Suspect]
     Indication: RADIOISOTOPE SCAN
     Dates: start: 20080507, end: 20080507
  2. ULTRA-TECHNEKOW [Concomitant]
     Indication: RADIOISOTOPE SCAN
     Route: 042
     Dates: start: 20080507, end: 20080507
  3. FLAGYL [Concomitant]
  4. LIPITOR [Concomitant]
  5. DIATEX [Concomitant]
  6. HECTOROL [Concomitant]
  7. PRILOSEC [Concomitant]
  8. POTASSIUM CHLORIDE [Concomitant]
  9. LEXAPRO [Concomitant]

REACTIONS (1)
  - DRUG INEFFECTIVE [None]
